FAERS Safety Report 24670079 (Version 1)
Quarter: 2024Q4

REPORT INFORMATION
  Report Type: Spontaneous
  Country: IN (occurrence: IN)
  Receive Date: 20241127
  Receipt Date: 20241127
  Transmission Date: 20250115
  Serious: Yes (Hospitalization, Other)
  Sender: GLAND PHARMA LTD
  Company Number: IN-GLANDPHARMA-IN-2024GLNLIT01033

PATIENT
  Age: 59 Year
  Sex: Male

DRUGS (2)
  1. GEMCITABINE [Suspect]
     Active Substance: GEMCITABINE
     Indication: Transitional cell carcinoma
     Dosage: ON DAY 1 AND DAY 8
     Route: 065
  2. CISPLATIN [Suspect]
     Active Substance: CISPLATIN
     Indication: Transitional cell carcinoma
     Dosage: EQUALLY DIVIDED INTO TWO DOSES ON DAY 1 AND DAY 2
     Route: 065

REACTIONS (2)
  - Acute febrile neutrophilic dermatosis [Recovered/Resolved]
  - Product use in unapproved indication [Unknown]
